FAERS Safety Report 16717044 (Version 1)
Quarter: 2019Q3

REPORT INFORMATION
  Report Type: Spontaneous
  Country: GB (occurrence: GB)
  Receive Date: 20190819
  Receipt Date: 20190819
  Transmission Date: 20191005
  Serious: Yes (Hospitalization)
  Sender: FDA-Public Use
  Company Number: GB-TEVA-2019-GB-1092869

PATIENT
  Age: 73 Year
  Sex: Male
  Weight: 95.2 kg

DRUGS (2)
  1. GEMCITABINE. [Suspect]
     Active Substance: GEMCITABINE
     Indication: GALLBLADDER NEOPLASM
     Dosage: 2052 MILLIGRAM, STRENGTH: 1000 MG/M2; DAYS 1 AND 8
     Route: 042
     Dates: start: 20180912, end: 20190116
  2. CISPLATIN. [Suspect]
     Active Substance: CISPLATIN
     Indication: GALLBLADDER NEOPLASM
     Dosage: 50 MILLIGRAM, STRENGTH: 30 MG/M2; DAYS 1 AND 8
     Route: 042
     Dates: start: 20180912, end: 20190116

REACTIONS (2)
  - Lower respiratory tract infection [Recovered/Resolved]
  - Off label use [Unknown]

NARRATIVE: CASE EVENT DATE: 20190122
